FAERS Safety Report 17884099 (Version 3)
Quarter: 2022Q4

REPORT INFORMATION
  Report Type: Spontaneous
  Country: DE (occurrence: DE)
  Receive Date: 20200611
  Receipt Date: 20221201
  Transmission Date: 20230113
  Serious: Yes (Death, Life-Threatening, Hospitalization, Other)
  Sender: FDA-Public Use
  Company Number: DE-ACCORD-184906

PATIENT
  Age: 59 Year
  Sex: Female

DRUGS (8)
  1. TACROLIMUS [Suspect]
     Active Substance: TACROLIMUS
     Indication: Immunosuppression
     Dosage: PO BID, THEN TAPERED DOWN TO 1 MG PO?BID. 1 MG QD
     Route: 048
  2. PREDNISOLONE [Suspect]
     Active Substance: PREDNISOLONE
     Indication: Immunosuppression
     Route: 042
  3. TOCILIZUMAB [Suspect]
     Active Substance: TOCILIZUMAB
     Indication: Immunosuppression
     Dosage: (D85)
     Route: 042
  4. BUDESONIDE [Suspect]
     Active Substance: BUDESONIDE
     Indication: Immunosuppression
     Dosage: 250 MG/ML, 1 ML BID
     Route: 055
  5. PREDNISOLONE [Suspect]
     Active Substance: PREDNISOLONE
     Indication: Immunosuppression
     Dosage: TAPERED DOWN FROM 500 MG TO 80 MG ON DAY 51 TO 58 AND THEN TAPERED DOWN TO 60 MG ON DAY 76
  6. PREDNISOLONE [Suspect]
     Active Substance: PREDNISOLONE
     Indication: Immunosuppression
     Dosage: TAPERED DOWN FROM 500 MG TO 200 MG/DAY IN DAYS 90-90
  7. PREDNISOLONE [Suspect]
     Active Substance: PREDNISOLONE
     Indication: Immunosuppression
     Dosage: 100 MILLIGRAM, QD ON DAY 85
  8. PREDNISOLONE [Suspect]
     Active Substance: PREDNISOLONE
     Indication: Immunosuppression
     Dosage: 20 MILLIGRAM, QD FROM DAY 47-48

REACTIONS (4)
  - Bronchopulmonary aspergillosis [Fatal]
  - Hypertransaminasaemia [Unknown]
  - Pulmonary embolism [Unknown]
  - Cytomegalovirus infection [Unknown]
